FAERS Safety Report 7105985-0 (Version None)
Quarter: 2010Q4

REPORT INFORMATION
  Report Type: 
  Country: None (occurrence: None)
  Receive Date: 20101110
  Receipt Date: 20101028
  Transmission Date: 20110411
  Serious: Yes (Death)
  Sender: FDA-Public Use
  Company Number: 2010EU005235

PATIENT
  Age: 45 Year
  Sex: Female
  Weight: 61 kg

DRUGS (13)
  1. FK463 (MICAFUNGIN) INJECTION [Suspect]
     Indication: ANTIFUNGAL PROPHYLAXIS
     Dosage: 100 MG, UID/QD, IV NOS
     Route: 042
     Dates: start: 20100913
  2. TACROLIMUS [Suspect]
     Indication: LIVER TRANSPLANT
     Dosage: BID, ORAL; 2 MG, BID, ORAL; 1 MG, BID, ORAL
     Route: 048
     Dates: end: 20100927
  3. TACROLIMUS [Suspect]
     Indication: LIVER TRANSPLANT
     Dosage: BID, ORAL; 2 MG, BID, ORAL; 1 MG, BID, ORAL
     Route: 048
     Dates: start: 20100910
  4. TACROLIMUS [Suspect]
     Indication: LIVER TRANSPLANT
     Dosage: BID, ORAL; 2 MG, BID, ORAL; 1 MG, BID, ORAL
     Route: 048
     Dates: start: 20100930
  5. CELLCEPT [Suspect]
     Indication: IMMUNOSUPPRESSION
     Dosage: 1000 MG, BID, ORAL
     Route: 048
     Dates: start: 20100910
  6. PREDNISONE TAB [Concomitant]
  7. CLAFORAN [Concomitant]
  8. GAVISCON (ALGELDRATE) TABLET [Concomitant]
  9. ATARAX (ALPRAZOLAM) [Concomitant]
  10. PANTOPRAZOLE SODIUM [Concomitant]
  11. CALCIPARINE [Concomitant]
  12. BACTRIM (AMMONIUM CHLORIDE) [Concomitant]
  13. ALDACTONE (POTASSIUM CANRENOATE) [Concomitant]

REACTIONS (2)
  - CARDIO-RESPIRATORY ARREST [None]
  - CONVULSION [None]
